FAERS Safety Report 22015509 (Version 3)
Quarter: 2023Q1

REPORT INFORMATION
  Report Type: Spontaneous
  Country: CZ (occurrence: CZ)
  Receive Date: 20230221
  Receipt Date: 20230314
  Transmission Date: 20230418
  Serious: Yes (Hospitalization)
  Sender: FDA-Public Use
  Company Number: CZ-Accord-301018

PATIENT
  Age: 75 Year
  Sex: Male
  Weight: 80.00 kg

DRUGS (19)
  1. GEMCITABINE [Suspect]
     Active Substance: GEMCITABINE
     Indication: Diffuse large B-cell lymphoma stage IV
     Dosage: SINGLE
     Route: 042
     Dates: start: 20220719, end: 20220719
  2. OXALIPLATIN [Suspect]
     Active Substance: OXALIPLATIN
     Indication: Diffuse large B-cell lymphoma stage IV
     Dosage: SINGLE
     Route: 042
     Dates: start: 20220719, end: 20220719
  3. EPCORITAMAB [Suspect]
     Active Substance: EPCORITAMAB
     Indication: Diffuse large B-cell lymphoma stage IV
     Dosage: PRIMING DOSE: 0.16 MILLIGRAM; SINGLE
     Route: 058
     Dates: start: 20220719, end: 20220719
  4. BISULEPIN [Concomitant]
     Active Substance: BISULEPIN
     Indication: Prophylaxis
     Dosage: 1 MG
     Route: 042
     Dates: start: 20221018, end: 20221018
  5. ACETAMINOPHEN [Concomitant]
     Active Substance: ACETAMINOPHEN
     Indication: Prophylaxis
     Dosage: 1000 MG
     Route: 048
     Dates: start: 20221018, end: 20221018
  6. PREDNISONE [Concomitant]
     Active Substance: PREDNISONE
     Indication: Prophylaxis
     Dosage: 100 MG, ONCE
     Route: 048
     Dates: start: 20221018, end: 20221018
  7. ZOLPIDEM TARTRATE [Concomitant]
     Active Substance: ZOLPIDEM TARTRATE
     Dates: start: 2022
  8. BISMUTH TRIBROMOPHENATE [Concomitant]
     Active Substance: BISMUTH TRIBROMOPHENATE
     Dates: start: 20220830
  9. FILGRASTIM [Concomitant]
     Active Substance: FILGRASTIM
     Dates: start: 20220921
  10. SULFAMETHOXAZOLE\TRIMETHOPRIM [Concomitant]
     Active Substance: SULFAMETHOXAZOLE\TRIMETHOPRIM
     Dates: start: 20220719
  11. NADROPARIN CALCIUM [Concomitant]
     Active Substance: NADROPARIN CALCIUM
     Dates: start: 202207
  12. ACYCLOVIR [Concomitant]
     Active Substance: ACYCLOVIR
     Dates: start: 2014
  13. GEMCITABINE [Suspect]
     Active Substance: GEMCITABINE
     Indication: Diffuse large B-cell lymphoma stage IV
     Dosage: SINGLE
     Route: 042
     Dates: start: 20220805, end: 20221101
  14. OXALIPLATIN [Suspect]
     Active Substance: OXALIPLATIN
     Indication: Diffuse large B-cell lymphoma stage IV
     Dosage: SINGLE
     Route: 042
     Dates: start: 20220805, end: 20220805
  15. OXALIPLATIN [Suspect]
     Active Substance: OXALIPLATIN
     Indication: Diffuse large B-cell lymphoma stage IV
     Dosage: 1Q2W
     Route: 042
     Dates: start: 20220823, end: 20221101
  16. EPCORITAMAB [Suspect]
     Active Substance: EPCORITAMAB
     Indication: Diffuse large B-cell lymphoma stage IV
     Dosage: RE-PRIMING DOSE: 0.16 MILLIGRAM; SINGLE
     Route: 058
     Dates: start: 20220805, end: 20220805
  17. EPCORITAMAB [Suspect]
     Active Substance: EPCORITAMAB
     Indication: Diffuse large B-cell lymphoma stage IV
     Dosage: INTERMEDIATE DOSE: 0.8 MILLIGRAM; SINGLE
     Route: 058
     Dates: start: 20220812, end: 20220812
  18. EPCORITAMAB [Suspect]
     Active Substance: EPCORITAMAB
     Indication: Diffuse large B-cell lymphoma stage IV
     Dosage: FULL DOSE: 48 MILLIGRAM, WEEKLY
     Route: 058
     Dates: start: 20220823, end: 20221018
  19. EPCORITAMAB [Suspect]
     Active Substance: EPCORITAMAB
     Indication: Diffuse large B-cell lymphoma stage IV
     Dosage: FULL DOSE: 48 MILLIGRAM; WEEKLY
     Route: 058
     Dates: start: 20221101

REACTIONS (1)
  - Atrioventricular block complete [Recovered/Resolved]

NARRATIVE: CASE EVENT DATE: 20221031
